FAERS Safety Report 14260441 (Version 2)
Quarter: 2018Q1

REPORT INFORMATION
  Report Type: Report from Study
  Country: US (occurrence: US)
  Receive Date: 20171207
  Receipt Date: 20180201
  Transmission Date: 20180508
  Serious: Yes (Hospitalization)
  Sender: FDA-Public Use
  Company Number: US-ACTELION-A-NJ2017-163634

PATIENT
  Age: 60 Year
  Sex: Female

DRUGS (3)
  1. ORENITRAM [Concomitant]
     Active Substance: TREPROSTINIL
     Dosage: 1.125 MG, UNK
     Route: 065
     Dates: start: 20171003
  2. TRACLEER [Suspect]
     Active Substance: BOSENTAN
     Indication: PULMONARY ARTERIAL HYPERTENSION
     Dosage: 125 MG, BID
     Route: 048
     Dates: start: 20150113
  3. ORENITRAM [Concomitant]
     Active Substance: TREPROSTINIL
     Dosage: 2 MG, TID
     Dates: start: 20171003

REACTIONS (6)
  - Cough [Unknown]
  - Dyspnoea [Recovered/Resolved]
  - Chest pain [Unknown]
  - Hypertension [Unknown]
  - Pleurisy [Recovered/Resolved]
  - Oedema [Unknown]

NARRATIVE: CASE EVENT DATE: 20171123
